FAERS Safety Report 6059295-3 (Version None)
Quarter: 2009Q1

REPORT INFORMATION
  Report Type: 
  Country: None (occurrence: None)
  Receive Date: 20090130
  Receipt Date: 20090119
  Transmission Date: 20090719
  Serious: Yes (Life-Threatening)
  Sender: FDA-Public Use
  Company Number: FR-ROCHE-610104

PATIENT
  Sex: Female

DRUGS (9)
  1. RIVOTRIL [Suspect]
     Indication: DRUG USE FOR UNKNOWN INDICATION
     Dosage: DOSAGE REGIMEN: 28 TABLETS.
     Route: 048
     Dates: start: 20081114, end: 20081114
  2. ZOLPIDEM [Suspect]
     Indication: DRUG USE FOR UNKNOWN INDICATION
     Dosage: DOSAGE REGIMEN: 30 TABLETS.
     Route: 048
     Dates: start: 20081114, end: 20081114
  3. TERALITHE [Suspect]
     Indication: DRUG USE FOR UNKNOWN INDICATION
     Dosage: TERALITHE LP 400( 2/DAY).
     Route: 048
  4. TERALITHE [Suspect]
     Dosage: DOSAGE REGIMEN: 60 TABLETS.
     Route: 048
     Dates: start: 20081114, end: 20081114
  5. LAMICTAL [Suspect]
     Indication: DRUG USE FOR UNKNOWN INDICATION
     Dosage: TDD: 350 MG/DAY.
     Route: 048
  6. LAMICTAL [Suspect]
     Dosage: DOSAGE REGIMEN: 30 TABLETS.
     Route: 048
     Dates: start: 20081114, end: 20081114
  7. ATHYMIL [Concomitant]
  8. SEROPRAM [Concomitant]
  9. LEVOTHYROX [Concomitant]

REACTIONS (1)
  - NERVOUS SYSTEM DISORDER [None]
